FAERS Safety Report 25623498 (Version 1)
Quarter: 2025Q3

REPORT INFORMATION
  Report Type: Spontaneous
  Country: US (occurrence: None)
  Receive Date: 20250730
  Receipt Date: 20250730
  Transmission Date: 20251020
  Serious: Yes (Other)
  Sender: FDA-CTU
  Company Number: None

PATIENT
  Age: 44 Year
  Sex: Female
  Weight: 68.04 kg

DRUGS (8)
  1. TIRZEPATIDE [Suspect]
     Active Substance: TIRZEPATIDE
     Dates: start: 202507, end: 20250703
  2. SERMORELIN [Suspect]
     Active Substance: SERMORELIN
  3. EFFEXOR [Concomitant]
     Active Substance: VENLAFAXINE HYDROCHLORIDE
  4. LATUDA [Concomitant]
     Active Substance: LURASIDONE HYDROCHLORIDE
  5. JUNEL [Concomitant]
     Active Substance: ETHINYL ESTRADIOL\NORETHINDRONE ACETATE
  6. NALTREXONE [Concomitant]
     Active Substance: NALTREXONE
  7. VITAMIN D [Concomitant]
     Active Substance: VITAMIN D NOS
  8. MAGNESIUM [Concomitant]
     Active Substance: MAGNESIUM

REACTIONS (4)
  - Product dispensing error [None]
  - Wrong product administered [None]
  - Adverse drug reaction [None]
  - Product dispensing error [None]

NARRATIVE: CASE EVENT DATE: 20250713
